FAERS Safety Report 8315423-8 (Version None)
Quarter: 2012Q2

REPORT INFORMATION
  Report Type: 
  Country: None (occurrence: None)
  Receive Date: 20120426
  Receipt Date: 20120418
  Transmission Date: 20120825
  Serious: Yes (Other)
  Sender: FDA-Public Use
  Company Number: US-ACTELION-A-NJ2012-64548

PATIENT

DRUGS (2)
  1. TRACLEER [Suspect]
     Indication: PULMONARY ARTERIAL HYPERTENSION
     Dosage: UNK
     Route: 048
     Dates: start: 20101019
  2. TYVASO [Concomitant]

REACTIONS (4)
  - DECREASED APPETITE [None]
  - WEIGHT DECREASED [None]
  - COUGH [None]
  - TRANSIENT ISCHAEMIC ATTACK [None]
